FAERS Safety Report 21240711 (Version 1)
Quarter: 2022Q3

REPORT INFORMATION
  Report Type: Spontaneous
  Country: JP (occurrence: None)
  Receive Date: 20220823
  Receipt Date: 20220823
  Transmission Date: 20221027
  Serious: Yes (Hospitalization)
  Sender: FDA-Public Use
  Company Number: JP-Unichem Pharmaceuticals (USA) Inc-UCM202208-000772

PATIENT
  Sex: Male

DRUGS (1)
  1. ARIPIPRAZOLE [Suspect]
     Active Substance: ARIPIPRAZOLE
     Indication: Schizophrenia
     Dosage: UNKNOWN

REACTIONS (4)
  - Duodenal perforation [Recovered/Resolved]
  - Portal venous gas [Recovered/Resolved]
  - Pneumonia aspiration [Recovered/Resolved]
  - Neuroleptic malignant syndrome [Recovered/Resolved]
